FAERS Safety Report 6429896-9 (Version None)
Quarter: 2009Q4

REPORT INFORMATION
  Report Type: 
  Country: None (occurrence: None)
  Receive Date: 20091104
  Receipt Date: 20091104
  Transmission Date: 20100525
  Serious: Yes (Hospitalization)
  Sender: FDA-Public Use
  Company Number: None

PATIENT
  Age: 65 Year
  Sex: Male
  Weight: 114 kg

DRUGS (1)
  1. INSULIN [Suspect]
     Indication: DIABETES MELLITUS
     Dosage: 65 UNITS ONCE SQ
     Route: 058
     Dates: start: 20071017

REACTIONS (3)
  - ACCIDENTAL EXPOSURE [None]
  - HYPOGLYCAEMIA [None]
  - WRONG DRUG ADMINISTERED [None]
